FAERS Safety Report 9666927 (Version 1)
Quarter: 2013Q4

REPORT INFORMATION
  Report Type: Spontaneous
  Country: IT (occurrence: None)
  Receive Date: 20131031
  Receipt Date: 20131031
  Transmission Date: 20140711
  Serious: Yes (Hospitalization)
  Sender: FDA-Public Use
  Company Number: AG-2013-1782

PATIENT
  Age: 57 Year
  Sex: Female
  Weight: 84 kg

DRUGS (8)
  1. CHLORAMBUCIL [Suspect]
     Indication: HODGKIN^S DISEASE
     Dosage: CYCLIC
     Route: 048
     Dates: start: 20130305, end: 20130506
  2. DELTACORTENE (PREDNISONE) [Suspect]
     Indication: HODGKIN^S DISEASE
     Dosage: CYCLIC
     Route: 048
     Dates: start: 20130305, end: 20130506
  3. VINBLASTINE [Suspect]
     Indication: HODGKIN^S DISEASE
     Dosage: CYCLIC
     Route: 048
     Dates: start: 20130305, end: 20130506
  4. PROCARBAZINE [Suspect]
     Indication: HODGKIN^S DISEASE
     Dosage: CYCLIC
     Route: 048
     Dates: start: 20130305, end: 20130506
  5. BLEOMYCIN SULFATE [Suspect]
     Indication: HODGKIN^S DISEASE
     Dosage: CYCLIC
     Route: 048
     Dates: start: 20130305, end: 20130506
  6. ETOPOSIDE (ETOPOSIDE) [Suspect]
     Indication: HODGKIN^S DISEASE
     Dosage: CYCLIC
     Route: 048
     Dates: start: 20130305, end: 20130506
  7. DOXORUBICIN HYDROCHLORIDE [Suspect]
     Indication: HODGKIN^S DISEASE
     Dosage: CYCLIC
     Route: 048
     Dates: start: 20130305, end: 20130506
  8. VINCRISTINE SULFATE [Suspect]
     Indication: HODGKIN^S DISEASE
     Dosage: CYCLIC
     Route: 048
     Dates: start: 20130305, end: 20130506

REACTIONS (2)
  - Anaemia [None]
  - Hyperglycaemia [None]
